FAERS Safety Report 6339741-8 (Version None)
Quarter: 2009Q3

REPORT INFORMATION
  Report Type: 
  Country: None (occurrence: None)
  Receive Date: 20090903
  Receipt Date: 20090827
  Transmission Date: 20100115
  Serious: Yes (Other)
  Sender: FDA-Public Use
  Company Number: US-SANOFI-SYNTHELABO-A03200903259

PATIENT
  Sex: Female

DRUGS (7)
  1. ANOTHER UNKNOWN SLEEP AGENT [Concomitant]
     Indication: DRUG USE FOR UNKNOWN INDICATION
     Dosage: UNK
     Route: 065
  2. HYDROXYZINE [Concomitant]
     Indication: DRUG USE FOR UNKNOWN INDICATION
     Dosage: UNK
     Route: 065
  3. LEXAPRO [Concomitant]
     Indication: DRUG USE FOR UNKNOWN INDICATION
     Dosage: UNK
     Route: 065
  4. ZOLPIDEM [Suspect]
     Indication: INSOMNIA
     Route: 048
     Dates: start: 20080801, end: 20090701
  5. ZOLPIDEM [Suspect]
     Indication: STRESS
     Route: 048
     Dates: start: 20080801, end: 20090701
  6. ZOLPIDEM [Suspect]
     Route: 048
     Dates: start: 20090619, end: 20090619
  7. ZOLPIDEM [Suspect]
     Route: 048
     Dates: start: 20090619, end: 20090619

REACTIONS (9)
  - AGGRESSION [None]
  - AMNESIA [None]
  - IMPAIRED DRIVING ABILITY [None]
  - INTENTIONAL OVERDOSE [None]
  - MOOD SWINGS [None]
  - NEGATIVE THOUGHTS [None]
  - SLEEP TALKING [None]
  - SLEEP-RELATED EATING DISORDER [None]
  - SOMNAMBULISM [None]
